FAERS Safety Report 19122225 (Version 1)
Quarter: 2021Q2

REPORT INFORMATION
  Report Type: Spontaneous
  Country: JP (occurrence: JP)
  Receive Date: 20210412
  Receipt Date: 20210412
  Transmission Date: 20210717
  Serious: Yes (Other)
  Sender: FDA-Public Use
  Company Number: JP-PFIZER INC-2021224674

PATIENT
  Age: 70 Year
  Sex: Male

DRUGS (1)
  1. MEROPENEM. [Suspect]
     Active Substance: MEROPENEM
     Indication: URINARY TRACT INFECTION
     Dosage: 1 G, 2X/DAY (1 G EVERY 12 HOURS)

REACTIONS (3)
  - Clostridium difficile colitis [Recovered/Resolved]
  - Protein-losing gastroenteropathy [Unknown]
  - Malabsorption [Unknown]
